FAERS Safety Report 15756144 (Version 1)
Quarter: 2018Q4

REPORT INFORMATION
  Report Type: Spontaneous
  Country: CN (occurrence: CN)
  Receive Date: 20181224
  Receipt Date: 20181224
  Transmission Date: 20190205
  Serious: Yes (Other)
  Sender: FDA-Public Use
  Company Number: CN-ROCHE-2234945

PATIENT
  Age: 59 Year
  Sex: Male

DRUGS (10)
  1. FOLINIC ACID [Concomitant]
     Active Substance: LEUCOVORIN
     Dosage: 12 COURSES
     Route: 065
     Dates: start: 20140701, end: 20150106
  2. FLUOROURACIL. [Concomitant]
     Active Substance: FLUOROURACIL
     Dosage: 12 COURSES
     Route: 065
  3. AVASTIN [Suspect]
     Active Substance: BEVACIZUMAB
     Indication: METASTASES TO LIVER
     Dosage: 3 COURSES
     Route: 042
     Dates: start: 20160929, end: 20161122
  4. AVASTIN [Suspect]
     Active Substance: BEVACIZUMAB
     Dosage: 3 COURSES
     Route: 065
     Dates: start: 20160405, end: 20160517
  5. AVASTIN [Suspect]
     Active Substance: BEVACIZUMAB
     Indication: COLON CANCER
     Route: 042
     Dates: start: 20150725, end: 20160517
  6. FOLINIC ACID [Concomitant]
     Active Substance: LEUCOVORIN
     Dosage: 12 COURSES
     Route: 065
  7. FLUOROURACIL. [Concomitant]
     Active Substance: FLUOROURACIL
     Dosage: 12 COURSES
     Route: 065
     Dates: start: 20140701, end: 20150106
  8. OXALIPLATIN. [Concomitant]
     Active Substance: OXALIPLATIN
     Dosage: 12 COURSES
     Route: 065
  9. OXALIPLATIN. [Concomitant]
     Active Substance: OXALIPLATIN
     Dosage: 12 COURSES
     Route: 065
     Dates: start: 20140701, end: 20150106
  10. AVASTIN [Suspect]
     Active Substance: BEVACIZUMAB
     Indication: METASTASES TO PERITONEUM
     Dosage: 5 COURSES
     Route: 042
     Dates: start: 20170103

REACTIONS (4)
  - Decreased appetite [Unknown]
  - Stomatitis [Unknown]
  - Palmar-plantar erythrodysaesthesia syndrome [Unknown]
  - Bone marrow failure [Unknown]
